FAERS Safety Report 20235760 (Version 2)
Quarter: 2022Q1

REPORT INFORMATION
  Report Type: Spontaneous
  Country: IT (occurrence: IT)
  Receive Date: 20211228
  Receipt Date: 20220203
  Transmission Date: 20220423
  Serious: Yes (Hospitalization, Other)
  Sender: FDA-Public Use
  Company Number: IT-MINISAL02-820583

PATIENT
  Age: 78 Year
  Sex: Female

DRUGS (2)
  1. OLANZAPINE [Suspect]
     Active Substance: OLANZAPINE
     Indication: Bipolar disorder
     Dosage: 1 DOSAGE FORM,TOTAL
     Route: 048
     Dates: start: 20211018, end: 20211018
  2. QUETIAPINE [Suspect]
     Active Substance: QUETIAPINE
     Indication: Bipolar disorder
     Dosage: 1 DOSAGE FORM,TOTAL
     Route: 048
     Dates: start: 20211018, end: 20211018

REACTIONS (3)
  - Loss of consciousness [Recovered/Resolved]
  - Sopor [Recovered/Resolved]
  - Medication error [Recovered/Resolved]

NARRATIVE: CASE EVENT DATE: 20211018
